FAERS Safety Report 6968465-9 (Version None)
Quarter: 2010Q3

REPORT INFORMATION
  Report Type: 
  Country: None (occurrence: None)
  Receive Date: 20100907
  Receipt Date: 20100826
  Transmission Date: 20110219
  Serious: Yes (Death, Hospitalization)
  Sender: FDA-Public Use
  Company Number: PHHY2010JP56865

PATIENT
  Sex: Male
  Weight: 50 kg

DRUGS (6)
  1. AFINITOR [Suspect]
     Indication: METASTATIC RENAL CELL CARCINOMA
     Dosage: 10 MG, DAILY
     Route: 048
     Dates: start: 20100610, end: 20100624
  2. NEXAVAR [Concomitant]
     Dosage: 800 MG, UNK
     Route: 048
     Dates: start: 20090224, end: 20090731
  3. SUTENT [Concomitant]
     Dosage: 50 MG, UNK
     Route: 048
     Dates: start: 20091120, end: 20100317
  4. THYRADIN S [Concomitant]
     Dosage: 50 MG, UNK
     Route: 048
     Dates: start: 20100210
  5. OXYCONTIN [Concomitant]
     Dosage: 20 MG, UNK
     Route: 048
     Dates: start: 20100324
  6. PROTECADIN [Concomitant]
     Dosage: 10 MG, UNK
     Route: 048
     Dates: start: 20100329, end: 20100615

REACTIONS (2)
  - MALIGNANT NEOPLASM PROGRESSION [None]
  - PNEUMONIA ASPIRATION [None]
